FAERS Safety Report 8844103 (Version 1)
Quarter: 2012Q4

REPORT INFORMATION
  Report Type: 
  Country: CA (occurrence: CA)
  Receive Date: 20121016
  Receipt Date: 20121016
  Transmission Date: 20130627
  Serious: Yes (Other)
  Sender: FDA-Public Use
  Company Number: PHHY2012CA091512

PATIENT

DRUGS (2)
  1. TASIGNA [Suspect]
     Route: 048
  2. BIAXIN [Suspect]

REACTIONS (1)
  - Neutropenia [Unknown]
